FAERS Safety Report 9417353 (Version 1)
Quarter: 2013Q3

REPORT INFORMATION
  Report Type: Spontaneous
  Country: AU (occurrence: AU)
  Receive Date: 20130724
  Receipt Date: 20130724
  Transmission Date: 20140515
  Serious: Yes (Death, Hospitalization)
  Sender: FDA-Public Use
  Company Number: AU-ACTELION-A-CH2012-67935

PATIENT
  Age: 72 Year
  Sex: Female
  Weight: 51 kg

DRUGS (13)
  1. TRACLEER [Suspect]
     Indication: PULMONARY ARTERIAL HYPERTENSION
     Dosage: 125 MG, BID
     Route: 048
     Dates: end: 20130719
  2. TRACLEER [Suspect]
     Dosage: 62.5 MG, BID
     Route: 048
     Dates: start: 200807
  3. WARFARIN [Concomitant]
  4. FOLIC ACID [Concomitant]
     Dosage: 5 UNK, OD
  5. ESOMEPRAZOLE [Concomitant]
     Dosage: 20 MG, QD
  6. ISOSORBIDE MONONITRATE [Concomitant]
     Dosage: 120 MG, UNK
  7. SYMBICORT [Concomitant]
  8. SPIRIVA [Concomitant]
  9. MAGMIN [Concomitant]
     Dosage: UNK, QD
  10. COLCHICINE [Concomitant]
     Dosage: 0.5 MG, QD
  11. KCL [Concomitant]
     Dosage: UNK, TID
  12. FRUSEMIDE [Concomitant]
     Dosage: 500 MG, BID
  13. SPIRONOLACTONE [Concomitant]
     Dosage: 25 MG, BID

REACTIONS (6)
  - Pulmonary arterial hypertension [Fatal]
  - Disease progression [Fatal]
  - Fluid overload [Unknown]
  - Right ventricular failure [Recovering/Resolving]
  - Oedema [Recovering/Resolving]
  - Oedema peripheral [Recovering/Resolving]
